FAERS Safety Report 25933621 (Version 1)
Quarter: 2025Q4

REPORT INFORMATION
  Report Type: Spontaneous
  Country: US (occurrence: US)
  Receive Date: 20251017
  Receipt Date: 20251017
  Transmission Date: 20260118
  Serious: Yes (Death, Life-Threatening, Other)
  Sender: BOEHRINGER INGELHEIM
  Company Number: US-Komodo Health-a23aa00000AqjhdAAB

PATIENT
  Sex: Female

DRUGS (1)
  1. JARDIANCE [Suspect]
     Active Substance: EMPAGLIFLOZIN
     Indication: Product used for unknown indication

REACTIONS (1)
  - Sepsis [Fatal]
